FAERS Safety Report 22120198 (Version 1)
Quarter: 2023Q1

REPORT INFORMATION
  Report Type: Spontaneous
  Country: US (occurrence: None)
  Receive Date: 20230320
  Receipt Date: 20230320
  Transmission Date: 20230418
  Serious: Yes (Other)
  Sender: FDA-Public Use
  Company Number: None

PATIENT
  Sex: Male

DRUGS (3)
  1. PIRFENIDONE [Suspect]
     Active Substance: PIRFENIDONE
     Indication: Hypotension
     Dosage: 801 MG ORAL?TAKE  1 TABLE BY MOUTH THREE TIMES DAILY WITH FOOD?
     Route: 048
     Dates: start: 20220706
  2. PIRFENIDONE [Suspect]
     Active Substance: PIRFENIDONE
     Dosage: OTHER FREQUENCY : TID WITH FOOD;?
     Route: 048
  3. IRON [Concomitant]
     Active Substance: IRON

REACTIONS (1)
  - Hospice care [None]
